FAERS Safety Report 8022053-4 (Version None)
Quarter: 2012Q1

REPORT INFORMATION
  Report Type: 
  Country: None (occurrence: None)
  Receive Date: 20120104
  Receipt Date: 20111229
  Transmission Date: 20120608
  Serious: Yes (Other)
  Sender: FDA-Public Use
  Company Number: US-GLAXOSMITHKLINE-A0959420A

PATIENT
  Sex: Female

DRUGS (1)
  1. ALLI [Suspect]
     Indication: WEIGHT DECREASED
     Route: 048

REACTIONS (6)
  - OEDEMA [None]
  - TREATMENT NONCOMPLIANCE [None]
  - REGURGITATION [None]
  - ABDOMINAL DISTENSION [None]
  - WEIGHT INCREASED [None]
  - NAUSEA [None]
